FAERS Safety Report 17366456 (Version 1)
Quarter: 2020Q1

REPORT INFORMATION
  Report Type: Spontaneous
  Country: US (occurrence: US)
  Receive Date: 20200204
  Receipt Date: 20200204
  Transmission Date: 20200409
  Serious: No
  Sender: FDA-Public Use
  Company Number: US-GLAXOSMITHKLINE-US2020016764

PATIENT
  Sex: Male

DRUGS (2)
  1. SORIATANE [Suspect]
     Active Substance: ACITRETIN
     Dosage: 25 MG, QOD
     Route: 065
  2. SORIATANE [Suspect]
     Active Substance: ACITRETIN
     Indication: PRODUCT USED FOR UNKNOWN INDICATION
     Dosage: 25 MG, QD
     Route: 065

REACTIONS (4)
  - Skin exfoliation [Unknown]
  - Onychomadesis [Unknown]
  - Alopecia [Unknown]
  - Underdose [Unknown]

NARRATIVE: CASE EVENT DATE: 2019
